FAERS Safety Report 13886906 (Version 1)
Quarter: 2017Q3

REPORT INFORMATION
  Report Type: Spontaneous
  Country: US (occurrence: US)
  Receive Date: 20170821
  Receipt Date: 20170821
  Transmission Date: 20171127
  Serious: No
  Sender: FDA-Public Use
  Company Number: US-ROCHE-1076279

PATIENT
  Sex: Female
  Weight: 77.18 kg

DRUGS (3)
  1. METHOTREXATE. [Concomitant]
     Active Substance: METHOTREXATE
  2. ACTEMRA [Suspect]
     Active Substance: TOCILIZUMAB
     Dosage: LAST INFUSION ON 04/JUN/2012.
     Route: 042
  3. ACTEMRA [Suspect]
     Active Substance: TOCILIZUMAB
     Indication: RHEUMATOID ARTHRITIS
     Dosage: PATIENT HAD 5 INFUSIONS. THE DRUG WAS ON HOLD TILL /MAR/2012.
     Route: 042

REACTIONS (1)
  - Alopecia [Not Recovered/Not Resolved]
